FAERS Safety Report 5815606-2 (Version None)
Quarter: 2008Q3

REPORT INFORMATION
  Report Type: 
  Country: None (occurrence: None)
  Receive Date: 20080716
  Receipt Date: 20080626
  Transmission Date: 20090109
  Serious: Yes (Other)
  Sender: FDA-Public Use
  Company Number: CIO08011128

PATIENT
  Age: 37 Year
  Sex: Female
  Weight: 45.4 kg

DRUGS (1)
  1. CREST PRO-HEALTH TOOTHPASTE, CLEAN MINT FLAVOR (SODIUM POLYPHOSPHATE 1 [Suspect]
     Dosage: 1 APPLIC, 1 ONLY FOR 1 DAY, OTHER
     Route: 050
     Dates: start: 20080621, end: 20080621

REACTIONS (8)
  - BLOOD PRESSURE INCREASED [None]
  - GLOSSODYNIA [None]
  - HYPERSENSITIVITY [None]
  - SWOLLEN TONGUE [None]
  - THROAT TIGHTNESS [None]
  - TONGUE INJURY [None]
  - TRACHEAL OEDEMA [None]
  - TREMOR [None]
